FAERS Safety Report 12407669 (Version 2)
Quarter: 2016Q2

REPORT INFORMATION
  Report Type: Spontaneous
  Country: KR (occurrence: KR)
  Receive Date: 20160526
  Receipt Date: 20160603
  Transmission Date: 20160815
  Serious: Yes (Other)
  Sender: FDA-Public Use
  Company Number: KR-ABBVIE-16P-090-1633572-00

PATIENT
  Age: 21 Year
  Sex: Male
  Weight: 79 kg

DRUGS (7)
  1. SEVOFRANE [Suspect]
     Active Substance: SEVOFLURANE
     Indication: ANAESTHESIA
     Dosage: 1-2%
     Route: 055
  2. SEVOFRANE [Suspect]
     Active Substance: SEVOFLURANE
     Dosage: 2-6%
     Route: 055
  3. REMIFENTANIL [Concomitant]
     Active Substance: REMIFENTANIL
     Indication: ANAESTHESIA
     Dosage: 0.05-0.15 MICROGRAM/KG/MIN
  4. PROPOFOL. [Concomitant]
     Active Substance: PROPOFOL
     Indication: ANAESTHESIA
     Route: 042
  5. FENTANYL. [Concomitant]
     Active Substance: FENTANYL
     Indication: PRODUCT USED FOR UNKNOWN INDICATION
     Dosage: 50-100 MICROGRAM
  6. SEVOFRANE [Suspect]
     Active Substance: SEVOFLURANE
     Dosage: 2.0-2.5%
     Route: 055
  7. ROCURONIUM [Concomitant]
     Active Substance: ROCURONIUM BROMIDE
     Indication: HYPOTONIA
     Route: 042

REACTIONS (6)
  - Delirium [Recovered/Resolved]
  - Cholelithiasis [Recovered/Resolved]
  - Cholecystitis [Recovered/Resolved]
  - Aspartate aminotransferase increased [Recovered/Resolved]
  - Body temperature increased [Recovered/Resolved]
  - Alanine aminotransferase increased [Recovered/Resolved]
